FAERS Safety Report 10723582 (Version 3)
Quarter: 2015Q1

REPORT INFORMATION
  Report Type: Spontaneous
  Country: AR (occurrence: None)
  Receive Date: 20150115
  Receipt Date: 20150122
  Transmission Date: 20150721
  Serious: Yes (Hospitalization)
  Sender: FDA-Public Use
  Company Number: AR2014GSK041624

PATIENT
  Sex: Female
  Weight: 79.2 kg

DRUGS (5)
  1. MARAVIROC [Suspect]
     Active Substance: MARAVIROC
     Dates: start: 20130425, end: 20140721
  2. ATAZANAVIR (ATAZANAVIR) [Concomitant]
     Active Substance: ATAZANAVIR
  3. LOPINAVIR AND RITONAVIR (LOPINAVIR + RITONAVIR) [Concomitant]
  4. LAMIVUDINE AND ZIDOVUDINE (LAMIVUDINE + ZIDOVUDINE) [Concomitant]
  5. RITONAVIR (RITONAVIR) [Concomitant]
     Active Substance: RITONAVIR

REACTIONS (2)
  - Blood gonadotrophin increased [None]
  - Metrorrhagia [None]

NARRATIVE: CASE EVENT DATE: 20141018
